FAERS Safety Report 23395445 (Version 1)
Quarter: 2024Q1

REPORT INFORMATION
  Report Type: Spontaneous
  Country: US (occurrence: US)
  Receive Date: 20240112
  Receipt Date: 20240112
  Transmission Date: 20240410
  Serious: No
  Sender: FDA-Public Use
  Company Number: US-OPELLA-2024OHG000939

PATIENT
  Sex: Female

DRUGS (1)
  1. ICY HOT KIDS PAIN RELIEF ROLL-ON [Suspect]
     Active Substance: MENTHOL
     Indication: Product used for unknown indication

REACTIONS (2)
  - Skin burning sensation [Unknown]
  - Skin ulcer [Unknown]
